FAERS Safety Report 24283963 (Version 1)
Quarter: 2024Q3

REPORT INFORMATION
  Report Type: Spontaneous
  Country: US (occurrence: US)
  Receive Date: 20240905
  Receipt Date: 20240905
  Transmission Date: 20241016
  Serious: No
  Sender: AMGEN
  Company Number: US-AMGEN-USASP2024175888

PATIENT
  Age: 46 Year
  Sex: Female

DRUGS (2)
  1. TEPEZZA [Suspect]
     Active Substance: TEPROTUMUMAB-TRBW
     Indication: Endocrine ophthalmopathy
     Dosage: UNK, (FIRST INFUSION)
     Route: 042
     Dates: start: 20240812
  2. TEPEZZA [Suspect]
     Active Substance: TEPROTUMUMAB-TRBW
     Dosage: UNK, (SECOND INFUSION)
     Route: 042
     Dates: start: 2024

REACTIONS (3)
  - Bowel movement irregularity [Unknown]
  - Myalgia [Unknown]
  - Alopecia [Unknown]

NARRATIVE: CASE EVENT DATE: 20240101
